FAERS Safety Report 7047084-2 (Version None)
Quarter: 2010Q4

REPORT INFORMATION
  Report Type: 
  Country: None (occurrence: None)
  Receive Date: 20101015
  Receipt Date: 20101006
  Transmission Date: 20110411
  Serious: Yes (Hospitalization)
  Sender: FDA-Public Use
  Company Number: FR-ASTRAZENECA-2010SE47737

PATIENT
  Age: 74 Year
  Sex: Male

DRUGS (5)
  1. NEXIUM [Suspect]
     Route: 048
     Dates: start: 20090706, end: 20090724
  2. PIPERACILLIN AND TAZOBACTAM [Suspect]
     Dates: start: 20090720, end: 20090724
  3. VANCOMYCIN [Concomitant]
     Dates: start: 20090721, end: 20090724
  4. AMIKIN [Concomitant]
     Dates: start: 20090720, end: 20090724
  5. HEPARINE CHOAY [Concomitant]

REACTIONS (1)
  - HEPARIN-INDUCED THROMBOCYTOPENIA [None]
